FAERS Safety Report 4692434-5 (Version None)
Quarter: 2005Q2

REPORT INFORMATION
  Report Type: 
  Country: None (occurrence: None)
  Receive Date: 20050616
  Receipt Date: 20050527
  Transmission Date: 20051028
  Serious: Yes (Hospitalization)
  Sender: FDA-Public Use
  Company Number: DSA_26549_2005

PATIENT
  Age: 81 Year
  Sex: Male

DRUGS (1)
  1. UNI MASDIL [Suspect]
     Indication: MYOCARDIAL ISCHAEMIA
     Dosage: 200 MG Q DAY PO
     Route: 048
     Dates: start: 20041217, end: 20041224

REACTIONS (1)
  - BRADYCARDIA [None]
